FAERS Safety Report 8028230-0 (Version None)
Quarter: 2012Q1

REPORT INFORMATION
  Report Type: 
  Country: None (occurrence: None)
  Receive Date: 20120106
  Receipt Date: 20120104
  Transmission Date: 20120608
  Serious: Yes (Other)
  Sender: FDA-Public Use
  Company Number: US-PFIZER INC-2011186014

PATIENT
  Sex: Female
  Weight: 65.76 kg

DRUGS (5)
  1. REMERON [Concomitant]
     Indication: DEPRESSION
     Dosage: 30 MG, DAILY
     Route: 048
  2. SYNTHROID [Concomitant]
     Indication: HYPOTHYROIDISM
     Dosage: 25 UG, DAILY
  3. EFFEXOR XR [Suspect]
     Indication: DEPRESSION
     Dosage: 225 MG, 1X/DAY
     Route: 048
     Dates: start: 20101101
  4. LISINOPRIL [Concomitant]
     Indication: HYPERTENSION
     Dosage: 10 MG, DAILY
  5. WELLBUTRIN [Concomitant]
     Indication: DEPRESSION
     Dosage: 150 MG, 1X/DAY
     Route: 048
     Dates: start: 20101101

REACTIONS (6)
  - DEPRESSION [None]
  - FATIGUE [None]
  - APATHY [None]
  - MALAISE [None]
  - ANXIETY [None]
  - SOMNOLENCE [None]
